FAERS Safety Report 13045440 (Version 1)
Quarter: 2016Q4

REPORT INFORMATION
  Report Type: Spontaneous
  Country: US (occurrence: US)
  Receive Date: 20161220
  Receipt Date: 20161220
  Transmission Date: 20170207
  Serious: No
  Sender: FDA-Public Use
  Company Number: None

PATIENT
  Age: 69 Year
  Sex: Female
  Weight: 52.21 kg

DRUGS (3)
  1. LEVOTHYROXINE. [Suspect]
     Active Substance: LEVOTHYROXINE
     Indication: THYROID DISORDER
     Dosage: 88 MCG + 75 MCG 30 A MONTH MORNING ONCE A DAY, MOUTH
     Route: 048
  2. LEVOTHYROXINE. [Suspect]
     Active Substance: LEVOTHYROXINE
     Indication: HYPOTHYROIDISM
     Dosage: 88 MCG + 75 MCG 30 A MONTH MORNING ONCE A DAY, MOUTH
     Route: 048
  3. MULTIVITAMIN WITH IRON + D3 [Concomitant]

REACTIONS (6)
  - Weight decreased [None]
  - Fatigue [None]
  - Alopecia [None]
  - Hot flush [None]
  - Product odour abnormal [None]
  - Feeling of body temperature change [None]

NARRATIVE: CASE EVENT DATE: 201605
